FAERS Safety Report 10341165 (Version 1)
Quarter: 2014Q3

REPORT INFORMATION
  Report Type: Report from Study
  Country: US (occurrence: US)
  Receive Date: 20140724
  Receipt Date: 20140724
  Transmission Date: 20150326
  Serious: Yes (Other)
  Sender: FDA-Public Use
  Company Number: US-ABBVIE-14P-163-1260912-00

PATIENT
  Sex: Female
  Weight: 131.66 kg

DRUGS (1)
  1. LUPRON DEPOT [Suspect]
     Active Substance: LEUPROLIDE ACETATE
     Indication: ENDOMETRIOSIS
     Route: 030
     Dates: start: 2002, end: 2002

REACTIONS (16)
  - Palpitations [Recovering/Resolving]
  - Systemic lupus erythematosus [Recovering/Resolving]
  - Hypocalcaemia [Recovering/Resolving]
  - Anaemia [Recovering/Resolving]
  - Weight increased [Recovering/Resolving]
  - Rash [Recovering/Resolving]
  - Fatigue [Not Recovered/Not Resolved]
  - Night sweats [Recovering/Resolving]
  - Mood swings [Recovering/Resolving]
  - Alopecia [Recovering/Resolving]
  - Dry skin [Recovering/Resolving]
  - Increased appetite [Recovering/Resolving]
  - Body temperature fluctuation [Recovering/Resolving]
  - Hair texture abnormal [Recovering/Resolving]
  - Hyperhidrosis [Not Recovered/Not Resolved]
  - Pain [Not Recovered/Not Resolved]

NARRATIVE: CASE EVENT DATE: 2002
